FAERS Safety Report 4381619-3 (Version None)
Quarter: 2004Q2

REPORT INFORMATION
  Report Type: 
  Country: None (occurrence: None)
  Receive Date: 20040621
  Receipt Date: 20040511
  Transmission Date: 20050107
  Serious: Yes (Life-Threatening)
  Sender: FDA-Public Use
  Company Number: JP-ROCHE-367606

PATIENT
  Age: 55 Year
  Sex: Male
  Weight: 63 kg

DRUGS (7)
  1. ROCEPHIN [Suspect]
     Indication: PREOPERATIVE CARE
     Dosage: ROUTE WAS REPORTED AS DRIP.
     Route: 050
     Dates: start: 20040511, end: 20040511
  2. CALTAN [Concomitant]
     Indication: HYPERPHOSPHATAEMIA
     Route: 048
  3. RENAGEL [Concomitant]
     Indication: HYPERPHOSPHATAEMIA
     Route: 048
  4. GASTER [Concomitant]
     Route: 048
  5. PURSENNID [Concomitant]
     Indication: CONSTIPATION
     Route: 048
  6. RISUMIC [Concomitant]
     Indication: HYPOTENSION
     Route: 048
  7. PANALDINE [Concomitant]
     Indication: POSTOPERATIVE CARE
     Route: 048

REACTIONS (6)
  - ANAPHYLACTIC SHOCK [None]
  - BLOOD PRESSURE IMMEASURABLE [None]
  - BRADYCARDIA [None]
  - LOSS OF CONSCIOUSNESS [None]
  - RESPIRATORY ARREST [None]
  - VENTRICULAR FIBRILLATION [None]
